FAERS Safety Report 7973444-9 (Version None)
Quarter: 2011Q4

REPORT INFORMATION
  Report Type: 
  Country: None (occurrence: None)
  Receive Date: 20111209
  Receipt Date: 20111125
  Transmission Date: 20120403
  Serious: Yes (Other)
  Sender: FDA-Public Use
  Company Number: AXC-2011-000499

PATIENT
  Age: 27 Year
  Sex: Male

DRUGS (9)
  1. URSODIOL [Suspect]
     Indication: VENOOCCLUSIVE LIVER DISEASE
     Dates: start: 20100101
  2. URSODIOL [Suspect]
     Indication: PROPHYLAXIS
     Dates: start: 20100101
  3. DEXAMETHASONE [Concomitant]
  4. METHOTREXATE [Suspect]
     Indication: PROPHYLAXIS AGAINST GRAFT VERSUS HOST DISEASE
     Dates: start: 20100101
  5. CYTARABINE [Concomitant]
  6. TACROLIMUS [Suspect]
     Indication: PROPHYLAXIS AGAINST GRAFT VERSUS HOST DISEASE
     Dates: start: 20100101
  7. VINCRISTINE [Concomitant]
  8. CYCLOPHOSPHAMIDE [Concomitant]
  9. DOXORUBICIN HCL [Concomitant]

REACTIONS (8)
  - STOMATITIS [None]
  - VENOOCCLUSIVE LIVER DISEASE [None]
  - WEIGHT INCREASED [None]
  - REFRACTORINESS TO PLATELET TRANSFUSION [None]
  - ABDOMINAL PAIN UPPER [None]
  - DISSEMINATED INTRAVASCULAR COAGULATION [None]
  - GRAFT VERSUS HOST DISEASE IN SKIN [None]
  - GRAFT VERSUS HOST DISEASE IN INTESTINE [None]
